FAERS Safety Report 7582437-5 (Version None)
Quarter: 2011Q2

REPORT INFORMATION
  Report Type: 
  Country: None (occurrence: None)
  Receive Date: 20110630
  Receipt Date: 20110623
  Transmission Date: 20111010
  Serious: No
  Sender: FDA-Public Use
  Company Number: US-PFIZER INC-2011140454

PATIENT
  Sex: Female

DRUGS (2)
  1. CLONIDINE [Suspect]
     Dosage: UNK
  2. LYRICA [Suspect]
     Dosage: 50 MG, 2X/DAY

REACTIONS (2)
  - DIZZINESS [None]
  - FEELING ABNORMAL [None]
